FAERS Safety Report 23484485 (Version 2)
Quarter: 2024Q2

REPORT INFORMATION
  Report Type: Spontaneous
  Country: US (occurrence: US)
  Receive Date: 20240206
  Receipt Date: 20240507
  Transmission Date: 20240716
  Serious: Yes (Other)
  Sender: FDA-Public Use
  Company Number: US-BRISTOL-MYERS SQUIBB COMPANY-2024-018099

PATIENT
  Age: 66 Year
  Sex: Male
  Weight: 74.84 kg

DRUGS (2)
  1. OPDIVO [Suspect]
     Active Substance: NIVOLUMAB
     Indication: Papillary renal cell carcinoma
     Dosage: DOSE : 1 DOSE;     FREQ : EVERY FOUR WEEKS BUT STOPPED AFTER ONE DOSE
     Route: 042
     Dates: start: 202211, end: 202211
  2. CABOMETYX [Concomitant]
     Active Substance: CABOZANTINIB S-MALATE
     Indication: Papillary renal cell carcinoma

REACTIONS (3)
  - Pulmonary oedema [Unknown]
  - Rash [Unknown]
  - Inflammation [Unknown]
